FAERS Safety Report 21999791 (Version 1)
Quarter: 2023Q1

REPORT INFORMATION
  Report Type: Spontaneous
  Country: DE (occurrence: DE)
  Receive Date: 20230216
  Receipt Date: 20230216
  Transmission Date: 20230418
  Serious: Yes (Other)
  Sender: FDA-Public Use
  Company Number: DE-009507513-2207DEU003906

PATIENT
  Age: 42 Year
  Sex: Female

DRUGS (8)
  1. RIBAVIRIN [Suspect]
     Active Substance: RIBAVIRIN
     Indication: Hepatitis E
     Dosage: 800 MILLIGRAM, QD
     Route: 048
  2. DOXORUBICIN [Suspect]
     Active Substance: DOXORUBICIN
     Indication: Grey zone lymphoma
     Dosage: 6 CYCLES
     Route: 065
  3. PREDNISOLONE [Suspect]
     Active Substance: PREDNISOLONE
     Indication: Grey zone lymphoma
     Dosage: 6 CYCLES
     Route: 065
  4. RITUXIMAB [Suspect]
     Active Substance: RITUXIMAB
     Indication: Grey zone lymphoma
     Dosage: UNK
     Route: 065
  5. CYCLOPHOSPHAMIDE [Suspect]
     Active Substance: CYCLOPHOSPHAMIDE
     Indication: Grey zone lymphoma
     Dosage: 6 CYCLES
     Route: 065
  6. VINCRISTINE [Suspect]
     Active Substance: VINCRISTINE
     Indication: Grey zone lymphoma
     Dosage: 6 CYCLES
     Route: 065
  7. R DHAP [Concomitant]
     Dosage: 2 CYCLES
     Route: 065
  8. R ICE [Concomitant]
     Dosage: UNK
     Route: 065

REACTIONS (5)
  - Cytopenia [Unknown]
  - Therapy partial responder [Unknown]
  - Hepatitis E [Unknown]
  - Product use issue [Unknown]
  - Off label use [Unknown]
